FAERS Safety Report 4402017-X (Version None)
Quarter: 2004Q3

REPORT INFORMATION
  Report Type: 
  Country: None (occurrence: None)
  Receive Date: 20040720
  Receipt Date: 20030314
  Transmission Date: 20050211
  Serious: Yes (Disabling)
  Sender: FDA-Public Use
  Company Number: PHFR2003GB01311

PATIENT
  Age: 14 Year
  Sex: Male

DRUGS (3)
  1. RITALIN-SR [Suspect]
     Indication: ATTENTION DEFICIT/HYPERACTIVITY DISORDER
     Dosage: 20MG/DAY
     Route: 048
     Dates: start: 20030206
  2. RITALIN-SR [Suspect]
     Dosage: 40MG/DAY
  3. LACTULOSE [Concomitant]
     Indication: CONSTIPATION
     Dosage: 10-20ML/BID/PRN
     Route: 048
     Dates: start: 20030206

REACTIONS (11)
  - CONGENITAL VENTRICULAR SEPTAL DEFECT [None]
  - CYANOSIS [None]
  - ECHOCARDIOGRAM ABNORMAL [None]
  - LIVEDO RETICULARIS [None]
  - PAIN IN EXTREMITY [None]
  - PERIPHERAL COLDNESS [None]
  - POOR PERIPHERAL CIRCULATION [None]
  - RAYNAUD'S PHENOMENON [None]
  - SKIN DISCOLOURATION [None]
  - TACHYCARDIA [None]
  - VENTRICULAR SEPTAL DEFECT ACQUIRED [None]
